FAERS Safety Report 4545981-0 (Version None)
Quarter: 2005Q1

REPORT INFORMATION
  Report Type: 
  Country: None (occurrence: None)
  Receive Date: 20050103
  Receipt Date: 20041215
  Transmission Date: 20050727
  Serious: Yes (Hospitalization)
  Sender: FDA-Public Use
  Company Number: 2004BI001846

PATIENT
  Sex: Female
  Weight: 65.7716 kg

DRUGS (8)
  1. AVONEX [Suspect]
     Indication: MULTIPLE SCLEROSIS
     Dosage: IM
     Route: 030
  2. DITROPAN [Concomitant]
  3. CLARITIN [Concomitant]
  4. XANAX [Concomitant]
  5. SYNTHROID [Concomitant]
  6. ELAVIL [Concomitant]
  7. ENTEX CAP [Concomitant]
  8. DENAVIR [Concomitant]

REACTIONS (4)
  - ADENOIDECTOMY [None]
  - BURN OPERATION [None]
  - TONSILLECTOMY [None]
  - TUBAL LIGATION [None]
